FAERS Safety Report 20636539 (Version 1)
Quarter: 2022Q1

REPORT INFORMATION
  Report Type: Spontaneous
  Country: US (occurrence: US)
  Receive Date: 20220325
  Receipt Date: 20220325
  Transmission Date: 20220423
  Serious: Yes (Other)
  Sender: FDA-Public Use
  Company Number: US-GLAXOSMITHKLINE-US2022GSK052649

PATIENT
  Sex: Female

DRUGS (8)
  1. RANITIDINE [Suspect]
     Active Substance: RANITIDINE
     Indication: Aphonia
     Dosage: 75 MG, QD
     Route: 065
     Dates: start: 201101, end: 201401
  2. RANITIDINE [Suspect]
     Active Substance: RANITIDINE
     Indication: Pharyngeal disorder
     Dosage: UNKNOWN AT THIS TIME, QD
     Route: 065
     Dates: start: 201101, end: 201401
  3. RANITIDINE [Suspect]
     Active Substance: RANITIDINE
     Indication: Aphonia
     Dosage: 75 MG, QD
     Route: 065
     Dates: start: 201101, end: 201401
  4. RANITIDINE [Suspect]
     Active Substance: RANITIDINE
     Indication: Pharyngeal disorder
     Dosage: UNKNOWN AT THIS TIME, QD
     Route: 065
     Dates: start: 201101, end: 201401
  5. ZANTAC [Suspect]
     Active Substance: RANITIDINE HYDROCHLORIDE
     Indication: Aphonia
     Dosage: 75 MG, QD
     Route: 065
     Dates: start: 201101, end: 201401
  6. ZANTAC [Suspect]
     Active Substance: RANITIDINE HYDROCHLORIDE
     Indication: Pharyngeal disorder
     Dosage: UNKNOWN AT THIS TIME, QD
     Route: 065
     Dates: start: 201101, end: 201401
  7. RANITIDINE [Suspect]
     Active Substance: RANITIDINE
     Indication: Aphonia
     Dosage: 75 MG, QD
     Route: 065
     Dates: start: 201101, end: 201401
  8. RANITIDINE [Suspect]
     Active Substance: RANITIDINE
     Indication: Pharyngeal disorder
     Dosage: UNKNOWN AT THIS TIME, QD
     Route: 065
     Dates: start: 201101, end: 201401

REACTIONS (2)
  - Breast cancer [Unknown]
  - Lung neoplasm malignant [Unknown]
